FAERS Safety Report 12641762 (Version 2)
Quarter: 2016Q4

REPORT INFORMATION
  Report Type: Spontaneous
  Country: US (occurrence: US)
  Receive Date: 20160810
  Receipt Date: 20161116
  Transmission Date: 20170207
  Serious: Yes (Death, Other)
  Sender: FDA-Public Use
  Company Number: US-ASTELLAS-2016US030663

PATIENT
  Age: 53 Year
  Sex: Female

DRUGS (1)
  1. TARCEVA [Suspect]
     Active Substance: ERLOTINIB HYDROCHLORIDE
     Indication: LUNG NEOPLASM MALIGNANT
     Route: 048
     Dates: start: 20160531

REACTIONS (5)
  - Fatigue [Unknown]
  - Eye pain [Unknown]
  - Death [Fatal]
  - Conjunctivitis [Unknown]
  - Eye ulcer [Unknown]

NARRATIVE: CASE EVENT DATE: 20161105
